FAERS Safety Report 8033182-3 (Version None)
Quarter: 2011Q4

REPORT INFORMATION
  Report Type: 
  Country: None (occurrence: None)
  Receive Date: 20111228
  Receipt Date: 20111221
  Transmission Date: 20120403
  Serious: Yes (Other)
  Sender: FDA-Public Use
  Company Number: 2011SP052427

PATIENT
  Age: 41 Year
  Sex: Female
  Weight: 78 kg

DRUGS (21)
  1. HYDROCHLOROTHIAZIDE [Concomitant]
  2. DOCUSATE SODIUM [Concomitant]
  3. MULTI-VITAMIN [Concomitant]
  4. PROCHOLOROPERZINE EDYSYLATE [Concomitant]
  5. DEXAMETHASONE ACETATE [Concomitant]
  6. ACYCLOVIR SODIUM [Concomitant]
  7. TEMOZOLOMIDE [Suspect]
     Indication: OVARIAN CANCER
     Dosage: 150 MG/M1;PO
     Route: 048
     Dates: start: 20101111
  8. ABT-888 (VELIPARIB) [Suspect]
     Indication: OVARIAN CANCER
     Dosage: 40 MG;PO
     Route: 048
     Dates: start: 20101111
  9. DUO-C.V.P [Concomitant]
  10. ONDANSETRON [Concomitant]
  11. LISINOPRIL [Concomitant]
  12. LORAZEPAM [Concomitant]
  13. ACETAMINOPHEN AND CODEINE PHOSPHATE [Concomitant]
  14. POLYETHYLENE GLYCOL [Concomitant]
  15. HYDROCORTISONE SODIUM SUCCINATE [Concomitant]
  16. DOXORUBICIN HCL [Suspect]
     Indication: OVARIAN CANCER
     Dosage: 50 MG/M2;IV
     Dates: start: 20100929, end: 20100929
  17. DOXORUBICIN HCL [Suspect]
     Indication: OVARIAN CANCER
     Dosage: 50 MG/M2;IV
     Dates: start: 20100901, end: 20100901
  18. POTASSIUM CHLORIDE [Concomitant]
  19. OXYCODONE HCL [Concomitant]
  20. ONDANSETRON [Concomitant]
  21. DIPHENHYDRAMIN HYDROCHLORIDE [Concomitant]

REACTIONS (3)
  - OVARIAN CANCER [None]
  - NEOPLASM PROGRESSION [None]
  - SQUAMOUS CELL CARCINOMA OF SKIN [None]
